FAERS Safety Report 18036660 (Version 2)
Quarter: 2020Q3

REPORT INFORMATION
  Report Type: Spontaneous
  Country: JP (occurrence: JP)
  Receive Date: 20200717
  Receipt Date: 20200728
  Transmission Date: 20201103
  Serious: Yes (Other)
  Sender: FDA-Public Use
  Company Number: NVSJ2020JP005901

PATIENT
  Sex: Male

DRUGS (13)
  1. BEOVU [Suspect]
     Active Substance: BROLUCIZUMAB-DBLL
     Indication: AGE-RELATED MACULAR DEGENERATION
     Dosage: 0.05 ML (RIGHT EYE)
     Route: 031
     Dates: start: 20200608
  2. LUCENTIS [Suspect]
     Active Substance: RANIBIZUMAB
     Indication: AGE-RELATED MACULAR DEGENERATION
     Dosage: 0.05 ML (RIGHT EYE)
     Route: 031
     Dates: start: 20160204
  3. LUCENTIS [Suspect]
     Active Substance: RANIBIZUMAB
     Dosage: 0.05 ML (RIGHT EYE)
     Route: 031
     Dates: start: 20171012
  4. LUCENTIS [Suspect]
     Active Substance: RANIBIZUMAB
     Dosage: 0.05 ML (RIGHT EYE)
     Route: 031
     Dates: start: 20190422
  5. LUCENTIS [Suspect]
     Active Substance: RANIBIZUMAB
     Dosage: 0.05 ML (RIGHT EYE)
     Route: 031
     Dates: start: 20180911
  6. LUCENTIS [Suspect]
     Active Substance: RANIBIZUMAB
     Dosage: 0.05 ML (RIGHT EYE)
     Route: 031
     Dates: start: 20200303, end: 20200303
  7. LUCENTIS [Suspect]
     Active Substance: RANIBIZUMAB
     Dosage: 0.05 ML (RIGHT EYE)
     Route: 031
     Dates: start: 20170613
  8. LUCENTIS [Suspect]
     Active Substance: RANIBIZUMAB
     Dosage: 0.05 ML (RIGHT EYE)
     Route: 031
     Dates: start: 20180312
  9. LUCENTIS [Suspect]
     Active Substance: RANIBIZUMAB
     Dosage: 0.05 ML (RIGHT EYE)
     Route: 031
     Dates: start: 20191210
  10. LUCENTIS [Suspect]
     Active Substance: RANIBIZUMAB
     Dosage: 0.05 ML (RIGHT EYE)
     Route: 031
     Dates: start: 20180611
  11. LUCENTIS [Suspect]
     Active Substance: RANIBIZUMAB
     Dosage: 0.05 ML (RIGHT EYE)
     Route: 031
     Dates: start: 20190724
  12. LUCENTIS [Suspect]
     Active Substance: RANIBIZUMAB
     Dosage: 0.05 ML (RIGHT EYE)
     Route: 031
     Dates: start: 20170321
  13. LUCENTIS [Suspect]
     Active Substance: RANIBIZUMAB
     Dosage: 0.05 ML (RIGHT EYE)
     Route: 031
     Dates: start: 20190121

REACTIONS (7)
  - Vitreous opacities [Recovering/Resolving]
  - Eye pain [Unknown]
  - Eye inflammation [Recovered/Resolved]
  - Visual impairment [Recovering/Resolving]
  - Anterior chamber inflammation [Unknown]
  - Hypopyon [Unknown]
  - Conjunctival hyperaemia [Recovered/Resolved]

NARRATIVE: CASE EVENT DATE: 202006
